FAERS Safety Report 18607192 (Version 2)
Quarter: 2020Q4

REPORT INFORMATION
  Report Type: Spontaneous
  Country: US (occurrence: US)
  Receive Date: 20201211
  Receipt Date: 20201217
  Transmission Date: 20210114
  Serious: Yes (Death, Other)
  Sender: FDA-Public Use
  Company Number: US-PFIZER INC-2020487860

PATIENT
  Age: 28 Year
  Sex: Female

DRUGS (4)
  1. HEPARIN SODIUM. [Suspect]
     Active Substance: HEPARIN SODIUM
     Indication: THROMBOPHLEBITIS
     Dosage: 24000 IU, OVER 24 H
     Route: 042
  2. HEPARIN SODIUM. [Suspect]
     Active Substance: HEPARIN SODIUM
     Indication: PYELONEPHRITIS
     Dosage: 36000 IU, PER 24 H INTRAVENOUSLY
     Route: 042
  3. HEPARIN SODIUM. [Suspect]
     Active Substance: HEPARIN SODIUM
     Dosage: 50000 IU PER 24 H
  4. AMPICILLIN [Concomitant]
     Active Substance: AMPICILLIN
     Indication: THROMBOPHLEBITIS
     Dosage: 2 G (INTRAVENOUSLY EVERY 6 H)
     Route: 042

REACTIONS (4)
  - Hepatic steatosis [Fatal]
  - Hepatic haematoma [Fatal]
  - Haemoperitoneum [Fatal]
  - Maternal exposure during pregnancy [Fatal]
